FAERS Safety Report 7950386 (Version 8)
Quarter: 2016Q3

REPORT INFORMATION
  Report Type: Spontaneous
  Country: US (occurrence: US)
  Receive Date: 20110518
  Receipt Date: 20160808
  Transmission Date: 20161109
  Serious: Yes (Hospitalization, Disabling, Other)
  Sender: FDA-Public Use
  Company Number: US-009507513-1105USA02547

PATIENT
  Sex: Female
  Weight: 54.43 kg

DRUGS (9)
  1. CALCIUM (UNSPECIFIED) [Concomitant]
     Active Substance: CALCIUM
     Dosage: UNK MG, UNK
     Dates: start: 1998
  2. EVISTA [Concomitant]
     Active Substance: RALOXIFENE HYDROCHLORIDE
     Indication: OSTEOPOROSIS
     Dosage: UNK MG, UNK
     Dates: start: 1995
  3. PRILOSEC [Concomitant]
     Active Substance: OMEPRAZOLE MAGNESIUM
     Indication: GASTROOESOPHAGEAL REFLUX DISEASE
     Dosage: UNK MG, UNK
     Dates: start: 1995
  4. ALENDRONATE SODIUM. [Suspect]
     Active Substance: ALENDRONATE SODIUM
     Indication: PROPHYLAXIS
     Dosage: UNK
     Route: 065
     Dates: start: 200901, end: 200905
  5. VITAMIN D [Concomitant]
     Active Substance: CHOLECALCIFEROL
     Dosage: UNK MG, UNK
     Dates: start: 1998
  6. LEVOTIROXINA S.O [Concomitant]
     Active Substance: LEVOTHYROXINE
     Indication: HYPOTHYROIDISM
     Dosage: UNK MG, UNK
     Dates: start: 1984
  7. FOSAMAX [Suspect]
     Active Substance: ALENDRONATE SODIUM
     Indication: OSTEOPOROSIS
     Dosage: 70 MG, QW
     Route: 048
     Dates: start: 1995, end: 2009
  8. FOSAMAX [Suspect]
     Active Substance: ALENDRONATE SODIUM
     Indication: OSTEOPENIA
  9. ALENDRONATE SODIUM. [Suspect]
     Active Substance: ALENDRONATE SODIUM
     Indication: OSTEOPOROSIS
     Dosage: 70 MG, UNK
     Route: 048
     Dates: start: 20020301, end: 200910

REACTIONS (58)
  - Depression [Not Recovered/Not Resolved]
  - Wrist fracture [Unknown]
  - Impaired healing [Unknown]
  - Bradycardia [Unknown]
  - Fall [Unknown]
  - Spinal osteoarthritis [Unknown]
  - Pyrexia [Unknown]
  - Intervertebral disc protrusion [Unknown]
  - Tooth disorder [Unknown]
  - Radius fracture [Unknown]
  - Sciatica [Unknown]
  - Peripheral vascular disorder [Unknown]
  - Incorrect dose administered [Unknown]
  - Cerebral atrophy [Unknown]
  - Blood potassium decreased [Unknown]
  - Urinary tract infection [Unknown]
  - Adverse drug reaction [Unknown]
  - Cerebrovascular accident [Unknown]
  - Osteoarthritis [Unknown]
  - Rib fracture [Unknown]
  - Haemorrhage [Unknown]
  - Cystocele [Unknown]
  - Pulmonary mass [Unknown]
  - Fracture [Unknown]
  - Blood pressure decreased [Unknown]
  - Fall [Unknown]
  - Anxiety [Unknown]
  - Gait disturbance [Unknown]
  - Hypertension [Unknown]
  - Blood urea increased [Unknown]
  - Hypotension [Unknown]
  - Syncope [Unknown]
  - Chronic kidney disease [Unknown]
  - Hiatus hernia [Unknown]
  - Chronic obstructive pulmonary disease [Unknown]
  - Musculoskeletal chest pain [Unknown]
  - Syncope [Unknown]
  - Syncope [Not Recovered/Not Resolved]
  - Loss of consciousness [Unknown]
  - Back pain [Unknown]
  - Syncope [Unknown]
  - Bradycardia [Unknown]
  - Low turnover osteopathy [Unknown]
  - Hyperlipidaemia [Unknown]
  - Laceration [Unknown]
  - Uterine leiomyoma [Unknown]
  - Multiple sclerosis [Unknown]
  - Hyponatraemia [Unknown]
  - Leukocytosis [Unknown]
  - Pelvic deformity [Unknown]
  - Fall [Unknown]
  - Spinal osteoarthritis [Unknown]
  - Hip fracture [Unknown]
  - Tooth disorder [Unknown]
  - Oral disorder [Unknown]
  - Hypoacusis [Unknown]
  - Craniocerebral injury [Unknown]
  - Spinal column stenosis [Unknown]

NARRATIVE: CASE EVENT DATE: 200109
